FAERS Safety Report 6396347-2 (Version None)
Quarter: 2009Q4

REPORT INFORMATION
  Report Type: 
  Country: None (occurrence: None)
  Receive Date: 20091012
  Receipt Date: 20090929
  Transmission Date: 20100525
  Serious: Yes (Hospitalization, Other)
  Sender: FDA-Public Use
  Company Number: PHHY2009CA29284

PATIENT
  Sex: Male

DRUGS (8)
  1. EXJADE [Suspect]
     Indication: MYELODYSPLASTIC SYNDROME
     Dosage: 750 MG, QD
     Route: 048
     Dates: start: 20090401
  2. EXJADE [Suspect]
     Dosage: UNK
     Dates: start: 20090713
  3. EXJADE [Suspect]
     Dosage: 875 MG, QD
     Route: 048
  4. DOMPERIDONE [Concomitant]
     Dosage: 10 MG, UNK
     Route: 048
  5. LANTUS [Concomitant]
     Dosage: 24-26 UNITS QD
  6. GLYBURIDE [Concomitant]
     Dosage: 10 MG, BID
     Route: 048
  7. CLOXACILLIN [Concomitant]
     Indication: INFECTION
     Dosage: 12 GRAM
  8. INSULIN [Concomitant]

REACTIONS (6)
  - CYSTITIS [None]
  - DECREASED APPETITE [None]
  - INFECTION [None]
  - SEPSIS [None]
  - SURGERY [None]
  - VOMITING [None]
